FAERS Safety Report 20701387 (Version 1)
Quarter: 2022Q2

REPORT INFORMATION
  Report Type: Spontaneous
  Country: US (occurrence: None)
  Receive Date: 20220411
  Receipt Date: 20220411
  Transmission Date: 20220721
  Serious: No
  Sender: FDA-Public Use
  Company Number: None

PATIENT
  Age: 80 Year
  Sex: Female
  Weight: 89.99 kg

DRUGS (19)
  1. EXEMESTANE [Suspect]
     Active Substance: EXEMESTANE
     Indication: Breast cancer female
     Dosage: FREQUENCY : DAILY;?
     Route: 048
     Dates: start: 20220217, end: 20220407
  2. EVEROLIMUS [Suspect]
     Active Substance: EVEROLIMUS
     Indication: Breast cancer female
     Dosage: FREQUENCY : DAILY;?
     Route: 048
     Dates: start: 202203, end: 20220407
  3. AMLODIPINE BESYLATE [Concomitant]
     Active Substance: AMLODIPINE BESYLATE
  4. SIMVASTATIN [Concomitant]
  5. SYNTHROID [Concomitant]
  6. AFINITOR [Concomitant]
     Active Substance: EVEROLIMUS
  7. AROMASIN [Concomitant]
     Active Substance: EXEMESTANE
  8. TYELENOL [Concomitant]
  9. ZITHROMAX [Concomitant]
     Active Substance: AZITHROMYCIN DIHYDRATE
  10. BETAMETHASONE DIPROPIONATE AUG EXTEON [Concomitant]
  11. PROCHLORPERAZIEN MALEATE [Concomitant]
  12. METOPROLOL SUCCINATE [Concomitant]
     Active Substance: METOPROLOL SUCCINATE
  13. MOTRIN IB [Concomitant]
     Active Substance: IBUPROFEN
  14. ZITHROMAX [Concomitant]
     Active Substance: AZITHROMYCIN DIHYDRATE
  15. POLYTRIM OPTHALMOIC SOLUTION [Concomitant]
  16. MEDROL ORAL TABLET THERAPY PACK 4M [Concomitant]
  17. FLONASE ALLERGY RELIEF NASAL SUSPENSION [Concomitant]
  18. TORESEMIDEV [Concomitant]
  19. DEXAMETHASONE [Concomitant]
     Active Substance: DEXAMETHASONE

REACTIONS (1)
  - Blood creatine increased [None]

NARRATIVE: CASE EVENT DATE: 20220407
